FAERS Safety Report 18565355 (Version 1)
Quarter: 2020Q4

REPORT INFORMATION
  Report Type: Spontaneous
  Country: US (occurrence: US)
  Receive Date: 20201201
  Receipt Date: 20201201
  Transmission Date: 20210114
  Serious: Yes (Other)
  Sender: FDA-Public Use
  Company Number: US-MYLANLABS-2020M1097733

PATIENT
  Age: 72 Year
  Sex: Female

DRUGS (1)
  1. ESTRADIOL VAGINAL CREAM USP [Suspect]
     Active Substance: ESTRADIOL
     Indication: URINARY TRACT INFECTION
     Dosage: 0.01 PERCENT
     Route: 067
     Dates: start: 20191001, end: 20191130

REACTIONS (8)
  - Heart rate increased [Unknown]
  - Vulvovaginal burning sensation [Unknown]
  - Stress [Unknown]
  - Breast cancer [Unknown]
  - Fatigue [Unknown]
  - Vulvovaginal pruritus [Recovered/Resolved with Sequelae]
  - Endometrial cancer [Unknown]
  - Application site pain [Unknown]

NARRATIVE: CASE EVENT DATE: 20200214
